FAERS Safety Report 24579911 (Version 1)
Quarter: 2024Q4

REPORT INFORMATION
  Report Type: Spontaneous
  Country: US (occurrence: US)
  Receive Date: 20241105
  Receipt Date: 20241105
  Transmission Date: 20250115
  Serious: No
  Sender: MYLAN
  Company Number: US-MYLANLABS-2024M1097522

PATIENT
  Age: 68 Year
  Sex: Female

DRUGS (1)
  1. TYRVAYA [Suspect]
     Active Substance: VARENICLINE TARTRATE
     Indication: Dry eye
     Dosage: 0.03 MILLIGRAM, BID (ONE SPRAY IN EACH NOSTRIL TWICE A DAY, 12 HOURS APART)
     Route: 065

REACTIONS (3)
  - Hypoaesthesia oral [Unknown]
  - Pharyngeal swelling [Unknown]
  - Dysphagia [Unknown]

NARRATIVE: CASE EVENT DATE: 20240101
